FAERS Safety Report 17660523 (Version 8)
Quarter: 2022Q2

REPORT INFORMATION
  Report Type: Spontaneous
  Country: US (occurrence: US)
  Receive Date: 20200413
  Receipt Date: 20220509
  Transmission Date: 20220721
  Serious: No
  Sender: FDA-Public Use
  Company Number: US-PFIZER INC-2019440108

PATIENT
  Age: 63 Year
  Sex: Female
  Weight: 127.01 kg

DRUGS (3)
  1. EFFEXOR XR [Suspect]
     Active Substance: VENLAFAXINE HYDROCHLORIDE
     Indication: Depression
     Dosage: 150 MG, 1X/DAY
     Route: 048
  2. EFFEXOR XR [Suspect]
     Active Substance: VENLAFAXINE HYDROCHLORIDE
     Indication: Anxiety
     Dosage: 75 MG, 1X/DAY
     Route: 048
  3. EFFEXOR XR [Suspect]
     Active Substance: VENLAFAXINE HYDROCHLORIDE
     Indication: Antidepressant therapy
     Dosage: 225 MG, DAILY (ONE 150 MG AND A 75 MG)
     Route: 048

REACTIONS (5)
  - Therapeutic product effect incomplete [Unknown]
  - Prescribed overdose [Unknown]
  - Arthropathy [Unknown]
  - Nervousness [Unknown]
  - Crying [Unknown]
